FAERS Safety Report 7358102-6 (Version None)
Quarter: 2011Q1

REPORT INFORMATION
  Report Type: 
  Country: None (occurrence: None)
  Receive Date: 20110307
  Receipt Date: 20100519
  Transmission Date: 20110831
  Serious: No
  Sender: FDA-Public Use
  Company Number: AEUSA201000186

PATIENT
  Age: 41 Year
  Sex: Female
  Weight: 77.5651 kg

DRUGS (8)
  1. TIOTROPIUM [Concomitant]
  2. NASONEX [Concomitant]
  3. SYMBICORT [Concomitant]
  4. SINGULAIR [Concomitant]
  5. DICUCLOMIDE /00068601/ [Concomitant]
  6. PROLASTIN-C [Suspect]
     Indication: ALPHA-1 ANTI-TRYPSIN DEFICIENCY
     Dosage: 60 MG/KG;QW;IV
     Route: 042
     Dates: start: 20100201
  7. PROVIGIL [Concomitant]
  8. ALBUTEROL [Concomitant]

REACTIONS (6)
  - PAIN [None]
  - FATIGUE [None]
  - SPUTUM DISCOLOURED [None]
  - MYALGIA [None]
  - INFLUENZA LIKE ILLNESS [None]
  - PRODUCTIVE COUGH [None]
